FAERS Safety Report 5672951-1 (Version None)
Quarter: 2008Q1

REPORT INFORMATION
  Report Type: 
  Country: None (occurrence: None)
  Receive Date: 20080319
  Receipt Date: 20080311
  Transmission Date: 20080703
  Serious: Yes (Life-Threatening, Hospitalization, Other)
  Sender: FDA-Public Use
  Company Number: B0503859A

PATIENT
  Age: 81 Year
  Sex: Male
  Weight: 80 kg

DRUGS (7)
  1. AVANDIA [Suspect]
     Dosage: 4MG PER DAY
     Dates: start: 20040101, end: 20080115
  2. PAROXETINE [Suspect]
     Indication: DEPRESSION
     Route: 048
  3. GLUCOVANCE [Suspect]
     Route: 065
  4. MONURIL [Suspect]
     Indication: URINARY TRACT INFECTION
  5. ZOCOR [Concomitant]
     Route: 048
  6. FERROGRADUMET [Concomitant]
     Route: 048
  7. OMEPRAZOLE [Concomitant]
     Route: 048
     Dates: end: 20080115

REACTIONS (1)
  - THROMBOCYTOPENIA [None]
